FAERS Safety Report 4352863-6 (Version None)
Quarter: 2004Q2

REPORT INFORMATION
  Report Type: 
  Country: None (occurrence: None)
  Receive Date: 20040429
  Receipt Date: 20040415
  Transmission Date: 20050107
  Serious: Yes (Other)
  Sender: FDA-Public Use
  Company Number: 2004S1001092

PATIENT
  Age: 76 Year
  Sex: Female
  Weight: 47.6277 kg

DRUGS (24)
  1. LEXAPRO [Suspect]
     Indication: DEPRESSION
     Dosage: 30MG BID, ORAL
     Route: 048
     Dates: start: 20040201, end: 20040215
  2. LEXAPRO [Suspect]
     Indication: DEPRESSION
     Dosage: 10 MG QD, ORAL
     Route: 048
     Dates: start: 20040224, end: 20040301
  3. LEXAPRO [Suspect]
     Indication: DEPRESSION
     Dosage: 10 MG QD PO
     Route: 048
     Dates: start: 20040311
  4. LEXAPRO [Suspect]
     Indication: DEPRESSION
     Dosage: 10 MG QD PO
     Route: 048
     Dates: start: 20030301, end: 20030601
  5. LEXAPRO [Suspect]
     Indication: DEPRESSION
     Dosage: 20 MG QD PO
     Route: 048
     Dates: start: 20030601, end: 20031201
  6. LEXAPRO [Suspect]
     Indication: DEPRESSION
     Dosage: 30 MG QD PO
     Route: 048
     Dates: start: 20031201, end: 20040131
  7. MAXZIDE [Suspect]
     Indication: HYPERTENSION
     Dates: start: 20040123, end: 20040101
  8. ENALAPRIL MALEATE [Suspect]
     Indication: HYPERTENSION
     Dosage: 10 MG QD PO
     Route: 048
     Dates: start: 20031013, end: 20040101
  9. WARFARIN SODIUM [Concomitant]
  10. FAMOTIDINE [Concomitant]
  11. METFORMIN HCL [Concomitant]
  12. AMLODIPINE [Concomitant]
  13. PROPOXYPHENE NAPSYLATE + APAP [Concomitant]
  14. VITAMIN C [Concomitant]
  15. ZINC [Concomitant]
  16. ACETAMINOPHEN [Concomitant]
  17. SIMETHICONE [Concomitant]
  18. DIPHENHYDRAMINE HCL [Concomitant]
  19. DIPHENOXYLATE AND ATROPINE SULFATE [Concomitant]
  20. LIDOCAINE 1% [Concomitant]
  21. MORPHINE [Concomitant]
  22. PROMETHAZINE [Concomitant]
  23. BARRIERE CREAM [Concomitant]
  24. BAG BALM [Concomitant]

REACTIONS (16)
  - ACCIDENTAL OVERDOSE [None]
  - BLOOD CREATININE INCREASED [None]
  - BLOOD POTASSIUM INCREASED [None]
  - BLOOD UREA INCREASED [None]
  - CONFUSIONAL STATE [None]
  - DISORIENTATION [None]
  - DRUG INTERACTION [None]
  - INFLUENZA LIKE ILLNESS [None]
  - INTERNATIONAL NORMALISED RATIO INCREASED [None]
  - LETHARGY [None]
  - MEDICATION ERROR [None]
  - NAUSEA [None]
  - PAIN [None]
  - PHARYNGOLARYNGEAL PAIN [None]
  - SEROTONIN SYNDROME [None]
  - URINARY RETENTION [None]
